FAERS Safety Report 14739880 (Version 2)
Quarter: 2018Q3

REPORT INFORMATION
  Report Type: Spontaneous
  Country: US (occurrence: US)
  Receive Date: 20180410
  Receipt Date: 20180710
  Transmission Date: 20181010
  Serious: No
  Sender: FDA-Public Use
  Company Number: US-PFIZER INC-2018144611

PATIENT
  Age: 78 Year
  Sex: Female
  Weight: 83 kg

DRUGS (1)
  1. IBRANCE [Suspect]
     Active Substance: PALBOCICLIB
     Indication: BREAST CANCER FEMALE
     Dosage: 100 MG, CYCLIC (D 1?21 Q 28 DAYS)
     Route: 048

REACTIONS (3)
  - Dizziness [Unknown]
  - Nausea [Unknown]
  - Fatigue [Unknown]

NARRATIVE: CASE EVENT DATE: 20180406
